FAERS Safety Report 8920400 (Version 1)
Quarter: 2012Q4

REPORT INFORMATION
  Report Type: 
  Country: US (occurrence: US)
  Receive Date: 20121122
  Receipt Date: 20121122
  Transmission Date: 20130627
  Serious: Yes (Other)
  Sender: FDA-Public Use
  Company Number: GXBR2012US002298

PATIENT
  Age: 75 Year
  Sex: Female

DRUGS (2)
  1. TRIAMTERENE/HCTZ [Suspect]
     Dosage: Triamterene 37.5mg and Hydrochlorothiazide 25mg, UNK
     Route: 048
  2. GLUCOPHAGE [Concomitant]
     Indication: DIABETES MELLITUS
     Dosage: UNK DF, UNK

REACTIONS (1)
  - Non-Hodgkin^s lymphoma [Not Recovered/Not Resolved]
